FAERS Safety Report 9404956 (Version 2)
Quarter: 2013Q4

REPORT INFORMATION
  Report Type: Spontaneous
  Country: US (occurrence: US)
  Receive Date: 20130717
  Receipt Date: 20131021
  Transmission Date: 20140711
  Serious: No
  Sender: FDA-Public Use
  Company Number: US-BRISTOL-MYERS SQUIBB COMPANY-19032804

PATIENT
  Age: 58 Year
  Sex: Male

DRUGS (15)
  1. YERVOY [Suspect]
     Indication: METASTATIC MALIGNANT MELANOMA
     Dosage: NO OF DOSES 3?13MAY13,3JUN13,24JUN13
     Route: 042
     Dates: start: 20130513, end: 201307
  2. VITAMIN D [Concomitant]
     Route: 048
  3. CALCIUM [Concomitant]
     Route: 048
  4. NAPROXEN [Concomitant]
     Dosage: OCCASIONALLY
     Route: 048
  5. VEMURAFENIB [Concomitant]
     Dosage: 3 PILLS.
  6. ABREVA [Concomitant]
     Route: 061
  7. IBUPROFEN [Concomitant]
     Route: 048
  8. LORATADINE [Concomitant]
  9. CO-Q-10 PLUS [Concomitant]
     Dosage: 1 TAB.
     Route: 048
  10. VITAMIN B12 [Concomitant]
     Dosage: 1 TAB.
     Route: 048
  11. CO-Q-10 PLUS [Concomitant]
     Dosage: 1 TAB.
     Route: 048
  12. VITAMIN D3 [Concomitant]
     Dosage: 1 TAB.
     Route: 048
  13. PROBIOTICA [Concomitant]
     Dosage: 1 TAB.
     Route: 048
  14. BENADRYL [Concomitant]
     Dosage: PRECHEMO.
     Route: 048
  15. PERCOCET [Concomitant]

REACTIONS (2)
  - Headache [Not Recovered/Not Resolved]
  - Sinus disorder [Unknown]
